FAERS Safety Report 7354055-5 (Version None)
Quarter: 2011Q1

REPORT INFORMATION
  Report Type: 
  Country: None (occurrence: None)
  Receive Date: 20110315
  Receipt Date: 20110310
  Transmission Date: 20110831
  Serious: Yes (Death, Hospitalization, Other)
  Sender: FDA-Public Use
  Company Number: PHHY2011BR19848

PATIENT
  Sex: Female

DRUGS (3)
  1. DIPROSPAN [Concomitant]
     Indication: BRONCHIAL OBSTRUCTION
     Dosage: ONCE EVERY 30 DAYS
     Dates: start: 19780101
  2. CALCIUM [Concomitant]
     Indication: OSTEOPOROSIS
     Dosage: 1 DF, QD
     Dates: start: 19870101
  3. EXELON [Suspect]
     Dosage: 1 DF, QD
     Route: 062
     Dates: start: 20090101

REACTIONS (7)
  - PNEUMONIA [None]
  - LUNG INFECTION [None]
  - FRACTURE [None]
  - FALL [None]
  - RESPIRATORY FAILURE [None]
  - PYREXIA [None]
  - HYPOPHAGIA [None]
